FAERS Safety Report 4295384-1 (Version None)
Quarter: 2004Q1

REPORT INFORMATION
  Report Type: 
  Country: None (occurrence: None)
  Receive Date: 20040216
  Receipt Date: 20030709
  Transmission Date: 20041129
  Serious: No
  Sender: FDA-Public Use
  Company Number: US-GLAXOSMITHKLINE-A0416049A

PATIENT
  Age: 7 Month
  Sex: Female

DRUGS (4)
  1. LAMICTAL [Suspect]
     Dosage: 5MG UNKNOWN
     Route: 048
     Dates: start: 20030601, end: 20030703
  2. PHENOBARBITAL TAB [Concomitant]
  3. TYLENOL (CAPLET) [Concomitant]
  4. MOTRIN [Concomitant]

REACTIONS (5)
  - DIARRHOEA [None]
  - PRURITUS [None]
  - RASH [None]
  - SCREAMING [None]
  - VOMITING [None]
